FAERS Safety Report 9948896 (Version 2)
Quarter: 2014Q1

REPORT INFORMATION
  Report Type: Spontaneous
  Country: US (occurrence: US)
  Receive Date: 20140304
  Receipt Date: 20140304
  Transmission Date: 20141002
  Serious: Yes (Disabling)
  Sender: FDA-Public Use
  Company Number: US-GE HEALTHCARE MEDICAL DIAGNOSTICS-OSCN-PR-0905S-0276

PATIENT
  Age: 59 Year
  Sex: Female

DRUGS (14)
  1. OMNISCAN [Suspect]
     Indication: DEEP VEIN THROMBOSIS
     Route: 042
     Dates: start: 20020924, end: 20020924
  2. OMNISCAN [Suspect]
     Indication: PRODUCT USED FOR UNKNOWN INDICATION
     Route: 042
     Dates: start: 20030711, end: 20030711
  3. OMNISCAN [Suspect]
     Indication: BACK PAIN
     Route: 042
     Dates: start: 20031117, end: 20031117
  4. OMNISCAN [Suspect]
     Indication: DEEP VEIN THROMBOSIS
     Route: 042
     Dates: start: 20041112, end: 20041112
  5. OMNISCAN [Suspect]
     Indication: PRODUCT USED FOR UNKNOWN INDICATION
     Route: 042
     Dates: start: 20050323, end: 20050323
  6. OMNISCAN [Suspect]
     Indication: JOINT SWELLING
     Route: 042
     Dates: start: 20050401, end: 20050401
  7. ULTRAM [Concomitant]
     Indication: PRODUCT USED FOR UNKNOWN INDICATION
     Dates: start: 20040224
  8. TYLENOL WITH HYDROCODONE [Concomitant]
     Indication: PRODUCT USED FOR UNKNOWN INDICATION
     Dates: start: 20040224
  9. KLONOPIN [Concomitant]
     Indication: PARKINSON^S DISEASE
  10. KLONOPIN [Concomitant]
     Indication: GAIT DISTURBANCE
  11. KLONOPIN [Concomitant]
     Indication: MUSCLE SPASTICITY
  12. OMNIPAQUE [Concomitant]
     Dates: start: 20050527, end: 20050527
  13. OMNIPAQUE [Concomitant]
     Dates: start: 20050916, end: 20050916
  14. VISIPAQUE [Concomitant]
     Dates: start: 20061228, end: 20061228

REACTIONS (1)
  - Nephrogenic systemic fibrosis [Not Recovered/Not Resolved]
